FAERS Safety Report 23672787 (Version 1)
Quarter: 2024Q1

REPORT INFORMATION
  Report Type: Spontaneous
  Country: US (occurrence: US)
  Receive Date: 20240326
  Receipt Date: 20240326
  Transmission Date: 20240409
  Serious: No
  Sender: FDA-Public Use
  Company Number: US-CORIUM, LLC-2023COR000315

PATIENT

DRUGS (5)
  1. AZSTARYS [Suspect]
     Active Substance: DEXMETHYLPHENIDATE HYDROCHLORIDE\SERDEXMETHYLPHENIDATE CHLORIDE
     Indication: Attention deficit hyperactivity disorder
     Dosage: 26.1 MG/5.2 MG
     Route: 048
     Dates: start: 20231123, end: 202311
  2. AZSTARYS [Suspect]
     Active Substance: DEXMETHYLPHENIDATE HYDROCHLORIDE\SERDEXMETHYLPHENIDATE CHLORIDE
     Dosage: 39.2 MG/7.8 MG
     Route: 048
     Dates: start: 20231208
  3. VENLAFAXINE [Concomitant]
     Active Substance: VENLAFAXINE HYDROCHLORIDE
     Indication: Anxiety
     Dosage: 37.5 MILLIGRAM, 2 TABLETS EVERY MORNING AND 1 TABLET EVERY EVENING
  4. GUANFACINE [Concomitant]
     Active Substance: GUANFACINE
     Indication: Tic
     Dosage: 2 MILLIGRAM, BID
  5. GUANFACINE [Concomitant]
     Active Substance: GUANFACINE
     Indication: Weight decreased

REACTIONS (2)
  - Disturbance in attention [Recovered/Resolved]
  - Therapeutic response shortened [Unknown]

NARRATIVE: CASE EVENT DATE: 20231101
